FAERS Safety Report 4515260-6 (Version None)
Quarter: 2004Q4

REPORT INFORMATION
  Report Type: 
  Country: None (occurrence: None)
  Receive Date: 20041126
  Receipt Date: 20041110
  Transmission Date: 20050328
  Serious: Yes (Other)
  Sender: FDA-Public Use
  Company Number: JP-2004-030545

PATIENT
  Age: 30 Year
  Sex: Female

DRUGS (15)
  1. BETAFERON (INTERFERON BETA - 1B ) INJECTION, 250UG [Suspect]
     Indication: MULTIPLE SCLEROSIS
     Dosage: 4 MIU, EVERY 2D, SUBCUTANEOUS; 8 MIU, EVERY 2D, SUBCUTANEOUS; 4 MIU EVERY 2D, SUBCUTANEOUS
     Route: 058
     Dates: start: 20031122, end: 20031224
  2. BETAFERON (INTERFERON BETA - 1B ) INJECTION, 250UG [Suspect]
     Indication: MULTIPLE SCLEROSIS
     Dosage: 4 MIU, EVERY 2D, SUBCUTANEOUS; 8 MIU, EVERY 2D, SUBCUTANEOUS; 4 MIU EVERY 2D, SUBCUTANEOUS
     Route: 058
     Dates: start: 20031226, end: 20040315
  3. BETAFERON (INTERFERON BETA - 1B ) INJECTION, 250UG [Suspect]
     Indication: MULTIPLE SCLEROSIS
     Dosage: 4 MIU, EVERY 2D, SUBCUTANEOUS; 8 MIU, EVERY 2D, SUBCUTANEOUS; 4 MIU EVERY 2D, SUBCUTANEOUS
     Route: 058
     Dates: start: 20040316, end: 20040323
  4. LENDORM [Concomitant]
  5. LOXONIN (LOXOPROFEN SODIUM) TABLET [Concomitant]
  6. SELBEX (TEPRENONE) CAPSULE [Concomitant]
  7. ALPRAZOLAM [Concomitant]
  8. DANTRIUM [Concomitant]
  9. CINAL [Concomitant]
  10. VOLTAREN (DICLOFENAC POTASSIUM) TABLET [Concomitant]
  11. ISODINE (POVIDONE-IODINE) [Concomitant]
  12. LORAZEPAM [Concomitant]
  13. DOGMATYL TABLET [Concomitant]
  14. KEFRAL (CEFACLOR) CAPSULE [Concomitant]
  15. PURSENNID (SENNOSIDE A+B, SENNOSIDE A+B CALCIUM) TABLET [Concomitant]

REACTIONS (4)
  - DEPRESSED MOOD [None]
  - HEPATIC FUNCTION ABNORMAL [None]
  - LIVER DISORDER [None]
  - MULTIPLE SCLEROSIS RELAPSE [None]
